FAERS Safety Report 14027465 (Version 3)
Quarter: 2017Q4

REPORT INFORMATION
  Report Type: Spontaneous
  Country: US (occurrence: US)
  Receive Date: 20170929
  Receipt Date: 20171016
  Transmission Date: 20180321
  Serious: Yes (Other)
  Sender: FDA-Public Use
  Company Number: US-AMGEN-USASP2017146749

PATIENT
  Age: 30 Year
  Sex: Female
  Weight: 73.92 kg

DRUGS (5)
  1. IBUPROFEN. [Concomitant]
     Active Substance: IBUPROFEN
     Indication: RHEUMATOID ARTHRITIS
     Dosage: 200 MG, BID
  2. ENBREL [Suspect]
     Active Substance: ETANERCEPT
     Indication: RHEUMATOID ARTHRITIS
     Dosage: 50 MG, QWK
     Route: 058
     Dates: start: 20050603, end: 20170922
  3. DULOXETINE. [Concomitant]
     Active Substance: DULOXETINE
     Indication: OBSESSIVE-COMPULSIVE DISORDER
     Dosage: 60 MG, TID
  4. DEPO-MEDROL [Concomitant]
     Active Substance: METHYLPREDNISOLONE ACETATE
     Dosage: 40 MG, UNK
     Route: 030
  5. DECADRON [Concomitant]
     Active Substance: DEXAMETHASONE
     Dosage: 4 MG, UNK
     Route: 030

REACTIONS (9)
  - Liver function test increased [Recovered/Resolved]
  - Hypercholesterolaemia [Unknown]
  - Hyperlipidaemia [Unknown]
  - Vitamin D deficiency [Unknown]
  - Rheumatoid arthritis [Unknown]
  - Tachycardia [Recovered/Resolved]
  - Low density lipoprotein increased [Unknown]
  - Vitamin B complex deficiency [Unknown]
  - Malaise [Unknown]

NARRATIVE: CASE EVENT DATE: 20170524
